FAERS Safety Report 16900280 (Version 1)
Quarter: 2019Q4

REPORT INFORMATION
  Report Type: Spontaneous
  Country: CA (occurrence: CA)
  Receive Date: 20191009
  Receipt Date: 20191009
  Transmission Date: 20200122
  Serious: Yes (Other)
  Sender: FDA-Public Use
  Company Number: CA-FRESENIUS KABI-FK201910931

PATIENT
  Age: 60 Year
  Sex: Female
  Weight: 116 kg

DRUGS (4)
  1. HALOPERIDOL INJECTION (MANUFACTURER UNKNOWN) [Suspect]
     Active Substance: HALOPERIDOL LACTATE
     Indication: VOMITING
     Route: 042
  2. PHENYTOIN SODIUM. [Concomitant]
     Active Substance: PHENYTOIN SODIUM
     Indication: PRODUCT USED FOR UNKNOWN INDICATION
     Route: 065
  3. HALOPERIDOL INJECTION (MANUFACTURER UNKNOWN) [Suspect]
     Active Substance: HALOPERIDOL LACTATE
     Indication: NAUSEA
  4. LAMOTRIGINE. [Concomitant]
     Active Substance: LAMOTRIGINE
     Indication: PRODUCT USED FOR UNKNOWN INDICATION
     Route: 065

REACTIONS (3)
  - Anticonvulsant drug level abnormal [Recovered/Resolved]
  - Concomitant disease aggravated [Recovered/Resolved]
  - Seizure [Recovered/Resolved]
